FAERS Safety Report 8095868-4 (Version None)
Quarter: 2012Q1

REPORT INFORMATION
  Report Type: 
  Country: None (occurrence: None)
  Receive Date: 20120129
  Receipt Date: 20111222
  Transmission Date: 20120608
  Serious: No
  Sender: FDA-Public Use
  Company Number: US-ABBOTT-11P-163-0886602-00

PATIENT
  Sex: Male

DRUGS (9)
  1. VOLTAREN [Concomitant]
     Indication: INFLAMMATION
     Dosage: GEL, 4 GRAMS, THREE TIMES DAILY
  2. SINEMET [Concomitant]
     Indication: MUSCLE SPASMS
  3. ACIPHEX [Concomitant]
     Indication: GASTROOESOPHAGEAL REFLUX DISEASE
  4. MAGNESIUM OXIDE [Concomitant]
     Indication: PRODUCT USED FOR UNKNOWN INDICATION
     Dosage: DAILY
  5. HUMIRA [Suspect]
     Indication: RHEUMATOID ARTHRITIS
     Dates: start: 20111222
  6. PREDNISONE TAB [Concomitant]
     Indication: RHEUMATOID ARTHRITIS
  7. IRON [Concomitant]
     Indication: PRODUCT USED FOR UNKNOWN INDICATION
  8. TRAMADOL HCL [Concomitant]
     Indication: PAIN
     Dosage: 3 TIMES DAILY, AS NEEDED
  9. VITAMIN D [Concomitant]
     Indication: PRODUCT USED FOR UNKNOWN INDICATION
     Dosage: DAILY

REACTIONS (1)
  - INJECTION SITE PAIN [None]
